FAERS Safety Report 8903832 (Version 2)
Quarter: 2013Q1

REPORT INFORMATION
  Report Type: Spontaneous
  Country: GB (occurrence: GB)
  Receive Date: 20121113
  Receipt Date: 20130124
  Transmission Date: 20140127
  Serious: Yes (Other)
  Sender: FDA-Public Use
  Company Number: GB-009507513-1211GBR003554

PATIENT
  Age: 75 Year
  Sex: Female

DRUGS (3)
  1. SIMVASTATIN [Suspect]
     Dosage: 40 MG, QPM
     Route: 048
     Dates: start: 20120529
  2. SIMVASTATIN [Suspect]
     Dosage: 20 MG, QPM
     Route: 048
  3. DIURETIC (UNSPECIFIED) [Concomitant]

REACTIONS (4)
  - Hallucination [Recovered/Resolved]
  - Abnormal behaviour [Recovered/Resolved]
  - Middle insomnia [Not Recovered/Not Resolved]
  - Panic reaction [Not Recovered/Not Resolved]
